FAERS Safety Report 5004109-3 (Version None)
Quarter: 2006Q2

REPORT INFORMATION
  Report Type: 
  Country: None (occurrence: None)
  Receive Date: 20060511
  Receipt Date: 20060429
  Transmission Date: 20061013
  Serious: Yes (Other)
  Sender: FDA-Public Use
  Company Number: 2006051605

PATIENT
  Sex: Female
  Weight: 77.1115 kg

DRUGS (4)
  1. DILANTIN KAPSEAL [Suspect]
     Indication: CONVULSION
     Dosage: 300 MG (100 MG, 3 IN 1 D), ORAL
     Route: 048
     Dates: start: 19991001
  2. CRESTOR [Concomitant]
  3. VERELAN (VERAPAMIL HYDROCHLORIDE) [Concomitant]
  4. METOPROLOL TARTRATE [Concomitant]

REACTIONS (6)
  - ANTICONVULSANT DRUG LEVEL INCREASED [None]
  - FEELING ABNORMAL [None]
  - MOVEMENT DISORDER [None]
  - PETIT MAL EPILEPSY [None]
  - PHARMACEUTICAL PRODUCT COMPLAINT [None]
  - UNDERDOSE [None]
